FAERS Safety Report 9616932 (Version 1)
Quarter: 2013Q4

REPORT INFORMATION
  Report Type: Report from Study
  Country: US (occurrence: US)
  Receive Date: 20131011
  Receipt Date: 20131011
  Transmission Date: 20140711
  Serious: Yes (Hospitalization)
  Sender: FDA-Public Use
  Company Number: US-ABBVIE-13P-163-1153753-00

PATIENT
  Sex: 0

DRUGS (1)
  1. HUMIRA [Suspect]
     Indication: PATERNAL DRUGS AFFECTING FOETUS
     Route: 050

REACTIONS (3)
  - Blood glucose decreased [Recovered/Resolved]
  - Paternal drugs affecting foetus [Unknown]
  - Foetal exposure during pregnancy [Unknown]
